FAERS Safety Report 8471460-4 (Version None)
Quarter: 2012Q2

REPORT INFORMATION
  Report Type: 
  Country: None (occurrence: None)
  Receive Date: 20120627
  Receipt Date: 20120622
  Transmission Date: 20120825
  Serious: Yes (Other)
  Sender: FDA-Public Use
  Company Number: PHHY2012VE054392

PATIENT
  Sex: Female

DRUGS (6)
  1. ZOLEDRONOC ACID [Suspect]
     Dosage: 5 MG, ONCE A YEAR
     Route: 042
     Dates: start: 20110101
  2. EUTHYROX [Concomitant]
     Indication: THYROID NEOPLASM
     Dosage: 50 UG, QD
     Route: 048
     Dates: start: 20100101, end: 20120201
  3. ZOLEDRONOC ACID [Suspect]
     Dosage: 5 MG, ONCE A YEAR
     Route: 042
     Dates: start: 20120213
  4. ZOLEDRONOC ACID [Suspect]
     Indication: OSTEOPOROSIS
     Dosage: 5 MG, ONCE A YEAR
     Route: 042
     Dates: start: 20100101
  5. COZAAR [Concomitant]
     Indication: HYPERTENSION
     Dosage: 25 MG, QD
     Route: 048
     Dates: start: 19820101
  6. CALCIUM [Concomitant]
     Indication: OSTEOPOROSIS
     Dosage: 500 MG, BID
     Route: 048

REACTIONS (3)
  - ARRHYTHMIA [None]
  - PALPITATIONS [None]
  - BLINDNESS TRANSIENT [None]
